FAERS Safety Report 25418193 (Version 1)
Quarter: 2025Q2

REPORT INFORMATION
  Report Type: Spontaneous
  Country: GB (occurrence: GB)
  Receive Date: 20250610
  Receipt Date: 20250610
  Transmission Date: 20250716
  Serious: Yes (Other)
  Sender: TEVA
  Company Number: None

PATIENT
  Age: 32 Year
  Sex: Female
  Weight: 62 kg

DRUGS (2)
  1. DOXYCYCLINE [Suspect]
     Active Substance: DOXYCYCLINE
     Indication: Arthropod bite
     Dosage: 200MG TWICE A DAY (MORNING + NIGHT)
     Route: 065
     Dates: start: 202505, end: 202505
  2. MIRTAZAPINE [Concomitant]
     Active Substance: MIRTAZAPINE
     Indication: Adverse drug reaction
     Dates: start: 202407

REACTIONS (4)
  - Photosensitivity reaction [Recovering/Resolving]
  - Nausea [Recovered/Resolved]
  - Paraesthesia [Recovered/Resolved]
  - Lethargy [Recovered/Resolved]

NARRATIVE: CASE EVENT DATE: 20250501
